FAERS Safety Report 6127210-X (Version None)
Quarter: 2009Q1

REPORT INFORMATION
  Report Type: 
  Country: None (occurrence: None)
  Receive Date: 20090320
  Receipt Date: 20090311
  Transmission Date: 20090719
  Serious: Yes (Other)
  Sender: FDA-Public Use
  Company Number: US-ABBOTT-09P-163-0562925-00

PATIENT
  Sex: Female

DRUGS (1)
  1. VICODIN [Suspect]
     Indication: ABDOMINAL PAIN UPPER

REACTIONS (3)
  - AMNESIA [None]
  - ANAPHYLACTIC SHOCK [None]
  - THROAT TIGHTNESS [None]
